FAERS Safety Report 17287848 (Version 2)
Quarter: 2020Q1

REPORT INFORMATION
  Report Type: Spontaneous
  Country: US (occurrence: US)
  Receive Date: 20200120
  Receipt Date: 20200130
  Transmission Date: 20200409
  Serious: Yes (Hospitalization, Other)
  Sender: FDA-Public Use
  Company Number: US-ROCHE-2525482

PATIENT
  Age: 47 Year
  Sex: Female

DRUGS (1)
  1. OCREVUS [Suspect]
     Active Substance: OCRELIZUMAB
     Indication: RELAPSING MULTIPLE SCLEROSIS
     Dosage: DATE OF TREATMENT: 28/JUL/2017 THEN 600 MG ON FEB 2018, AUG 2018, MAR 2019
     Route: 065
     Dates: start: 20170714

REACTIONS (9)
  - Abdominal distension [Unknown]
  - Colitis [Unknown]
  - Hyperaesthesia [Unknown]
  - Stomatitis [Unknown]
  - Alopecia [Unknown]
  - Skin burning sensation [Unknown]
  - Urinary tract infection [Unknown]
  - Diarrhoea [Unknown]
  - Ear infection [Unknown]

NARRATIVE: CASE EVENT DATE: 201806
